FAERS Safety Report 7611414-0 (Version None)
Quarter: 2011Q3

REPORT INFORMATION
  Report Type: 
  Country: None (occurrence: None)
  Receive Date: 20110715
  Receipt Date: 20110711
  Transmission Date: 20111222
  Serious: Yes (Death)
  Sender: FDA-Public Use
  Company Number: ES-CELGENEUS-144-21880-11071024

PATIENT
  Sex: Female

DRUGS (1)
  1. REVLIMID [Suspect]
     Dosage: 15 MILLIGRAM
     Route: 048

REACTIONS (1)
  - DEATH [None]
